FAERS Safety Report 7063305-4 (Version None)
Quarter: 2010Q4

REPORT INFORMATION
  Report Type: 
  Country: None (occurrence: None)
  Receive Date: 20101026
  Receipt Date: 20100713
  Transmission Date: 20110411
  Serious: Yes (Disabling)
  Sender: FDA-Public Use
  Company Number: US-PFIZER INC-2010088051

PATIENT
  Sex: Female
  Weight: 77.1 kg

DRUGS (5)
  1. LIPITOR [Suspect]
     Indication: BLOOD CHOLESTEROL INCREASED
     Dosage: UNK
     Dates: start: 20090101, end: 20090101
  2. POTASSIUM CHLORIDE [Concomitant]
     Dosage: 20 MEQ, UNK
  3. MAXZIDE [Concomitant]
     Indication: HYPERTENSION
     Dosage: 2.5 MG, UNK
  4. FENOFIBRATE [Concomitant]
     Dosage: 160 MG, UNK
  5. VERAPAMIL [Concomitant]
     Dosage: 250 MG, UNK

REACTIONS (1)
  - MYALGIA [None]
